FAERS Safety Report 5474352-8 (Version None)
Quarter: 2007Q4

REPORT INFORMATION
  Report Type: 
  Country: None (occurrence: None)
  Receive Date: 20071002
  Receipt Date: 20070807
  Transmission Date: 20080405
  Serious: No
  Sender: FDA-Public Use
  Company Number: US-ASTRAZENECA-2007UW19072

PATIENT
  Age: 64 Year
  Sex: Female
  Weight: 74.8 kg

DRUGS (6)
  1. ARIMIDEX [Suspect]
     Indication: BREAST CANCER
     Route: 048
     Dates: start: 20060101
  2. TRAZODONE HCL [Concomitant]
  3. LISINOPRIL [Concomitant]
  4. PROVIGIL [Concomitant]
  5. SEROQUEL [Concomitant]
  6. PROZAC [Concomitant]

REACTIONS (4)
  - DEPRESSION [None]
  - FATIGUE [None]
  - MOOD ALTERED [None]
  - WEIGHT INCREASED [None]
